FAERS Safety Report 14613061 (Version 1)
Quarter: 2018Q1

REPORT INFORMATION
  Report Type: Spontaneous
  Country: US (occurrence: US)
  Receive Date: 20180308
  Receipt Date: 20180308
  Transmission Date: 20180509
  Serious: Yes (Hospitalization)
  Sender: FDA-Public Use
  Company Number: None

PATIENT
  Age: 24 Year
  Sex: Male
  Weight: 49.5 kg

DRUGS (1)
  1. NALTREXONE 50 MG [Suspect]
     Active Substance: NALTREXONE
     Indication: REHABILITATION THERAPY
     Dates: start: 20180307

REACTIONS (2)
  - Abdominal pain upper [None]
  - Diarrhoea [None]

NARRATIVE: CASE EVENT DATE: 20180307
